FAERS Safety Report 8531691-1 (Version None)
Quarter: 2012Q3

REPORT INFORMATION
  Report Type: 
  Country: None (occurrence: None)
  Receive Date: 20120723
  Receipt Date: 20120712
  Transmission Date: 20120928
  Serious: Yes (Hospitalization)
  Sender: FDA-Public Use
  Company Number: US-VERTEX PHARMACEUTICALS INC.-AE-2012-008793

PATIENT
  Sex: Female

DRUGS (9)
  1. FLONASE [Concomitant]
     Indication: NASAL CONGESTION
  2. VITAMIN D [Concomitant]
  3. KALYDECO [Suspect]
     Indication: CYSTIC FIBROSIS
     Route: 048
     Dates: start: 20120224
  4. ADEKS [Concomitant]
  5. SINGULAIR [Concomitant]
  6. ZITHROMAX [Concomitant]
  7. AMITRIPTYLINE HCL [Concomitant]
     Indication: MIGRAINE
  8. BACTRIM [Concomitant]
     Indication: INFECTION
  9. CREON [Concomitant]

REACTIONS (3)
  - FATIGUE [None]
  - INFECTIVE PULMONARY EXACERBATION OF CYSTIC FIBROSIS [None]
  - DRUG INTERACTION [None]
